FAERS Safety Report 6142214-9 (Version None)
Quarter: 2009Q2

REPORT INFORMATION
  Report Type: 
  Country: None (occurrence: None)
  Receive Date: 20090403
  Receipt Date: 20070723
  Transmission Date: 20091009
  Serious: Yes (Hospitalization, Other)
  Sender: FDA-Public Use
  Company Number: US-ASTRAZENECA-2007UW02129

PATIENT
  Age: 17262 Day
  Sex: Male
  Weight: 88.5 kg

DRUGS (35)
  1. SEROQUEL [Suspect]
     Indication: DEPRESSION
     Route: 048
     Dates: start: 20031201
  2. SEROQUEL [Suspect]
     Indication: BIPOLAR DISORDER
     Route: 048
     Dates: start: 20031201
  3. SEROQUEL [Suspect]
     Indication: SCHIZOPHRENIA
     Route: 048
     Dates: start: 20031201
  4. SEROQUEL [Suspect]
     Indication: INSOMNIA
     Route: 048
     Dates: start: 20031201
  5. SEROQUEL [Suspect]
     Dosage: 40 MG  - 80 MG
     Route: 048
     Dates: start: 20021022
  6. SEROQUEL [Suspect]
     Dosage: 40 MG  - 80 MG
     Route: 048
     Dates: start: 20021022
  7. SEROQUEL [Suspect]
     Dosage: 40 MG  - 80 MG
     Route: 048
     Dates: start: 20021022
  8. SEROQUEL [Suspect]
     Dosage: 40 MG  - 80 MG
     Route: 048
     Dates: start: 20021022
  9. ZOLOFT [Concomitant]
  10. ALLOPURINOL [Concomitant]
  11. PROTONIX [Concomitant]
  12. ALDACTONE [Concomitant]
  13. ATENOLOL [Concomitant]
  14. LIPITOR [Concomitant]
  15. DEPAKOTE [Concomitant]
  16. PROZAC [Concomitant]
  17. CLARITHROMYCIN [Concomitant]
  18. AMOXICILLIN [Concomitant]
  19. IBUPROFEN [Concomitant]
  20. CYCLOBENZAPRINE HCL [Concomitant]
  21. ENDOCET [Concomitant]
  22. CARISOPRODOL [Concomitant]
  23. INDOMETHACIN [Concomitant]
  24. ALBUTEROL [Concomitant]
  25. TRIAMCINOLONE [Concomitant]
  26. METFORMIN HCL [Concomitant]
  27. COLCHICINE [Concomitant]
  28. NITROGLYCERIN [Concomitant]
  29. SIMVASTATIN [Concomitant]
  30. ATIVAN [Concomitant]
  31. LIBRIUM [Concomitant]
  32. HYDROCHLOROTHIAZIDE [Concomitant]
  33. PREDNISONE [Concomitant]
  34. METOPROLOL TARTRATE [Concomitant]
  35. MOMETASONE FUROATE [Concomitant]

REACTIONS (28)
  - ALCOHOL POISONING [None]
  - BACK PAIN [None]
  - DECREASED APPETITE [None]
  - DYSPEPSIA [None]
  - EAR PAIN [None]
  - FAECAL INCONTINENCE [None]
  - FATIGUE [None]
  - GASTROOESOPHAGEAL REFLUX DISEASE [None]
  - HAEMOPTYSIS [None]
  - HEADACHE [None]
  - HIATUS HERNIA [None]
  - LIVER DISORDER [None]
  - MYALGIA [None]
  - MYOPIA [None]
  - NASAL POLYPS [None]
  - NASOPHARYNGITIS [None]
  - NAUSEA [None]
  - NECK PAIN [None]
  - OEDEMA PERIPHERAL [None]
  - PAIN IN EXTREMITY [None]
  - POLYDIPSIA [None]
  - POLYURIA [None]
  - RHINITIS ALLERGIC [None]
  - SLEEP DISORDER [None]
  - SUICIDAL IDEATION [None]
  - SYNCOPE [None]
  - TINNITUS [None]
  - TYPE 2 DIABETES MELLITUS [None]
